FAERS Safety Report 6274120-3 (Version None)
Quarter: 2009Q3

REPORT INFORMATION
  Report Type: 
  Country: None (occurrence: None)
  Receive Date: 20090720
  Receipt Date: 20090709
  Transmission Date: 20100115
  Serious: Yes (Hospitalization)
  Sender: FDA-Public Use
  Company Number: PHHO2009DE08632

PATIENT
  Sex: Male
  Weight: 91.5 kg

DRUGS (1)
  1. RAD 666 RAD+TAB [Suspect]
     Indication: METASTATIC RENAL CELL CARCINOMA
     Dosage: OPEN LABEL
     Route: 048
     Dates: start: 20090627

REACTIONS (6)
  - BLOOD CREATININE INCREASED [None]
  - CHEST PAIN [None]
  - GENERAL PHYSICAL HEALTH DETERIORATION [None]
  - INFLAMMATION [None]
  - LUNG DISORDER [None]
  - PYREXIA [None]
